FAERS Safety Report 9347358 (Version 2)
Quarter: 2013Q2

REPORT INFORMATION
  Report Type: Spontaneous
  Country: US (occurrence: US)
  Receive Date: 20130613
  Receipt Date: 20130621
  Transmission Date: 20140414
  Serious: Yes (Death, Other)
  Sender: FDA-Public Use
  Company Number: US-PFIZER INC-2013174834

PATIENT
  Age: 60 Year
  Sex: Female

DRUGS (2)
  1. TORISEL [Suspect]
     Indication: RENAL CANCER
     Dosage: 25 MG, UNK
  2. TORISEL [Suspect]
     Indication: MALIGNANT URINARY TRACT NEOPLASM

REACTIONS (1)
  - Death [Fatal]
